FAERS Safety Report 11415075 (Version 1)
Quarter: 2015Q3

REPORT INFORMATION
  Report Type: Spontaneous
  Country: US (occurrence: None)
  Receive Date: 20150824
  Receipt Date: 20150824
  Transmission Date: 20151125
  Serious: No
  Sender: FDA-Public Use
  Company Number: None

PATIENT
  Age: 26 Year
  Sex: Female
  Weight: 49.9 kg

DRUGS (3)
  1. ADDERALL [Suspect]
     Active Substance: AMPHETAMINE ASPARTATE\AMPHETAMINE SULFATE\DEXTROAMPHETAMINE SACCHARATE\DEXTROAMPHETAMINE SULFATE
     Indication: ATTENTION DEFICIT/HYPERACTIVITY DISORDER
     Dosage: TAKEN BY MOUTH
     Route: 048
  2. CAMILLA [Concomitant]
  3. ADDREALL [Concomitant]

REACTIONS (7)
  - Drug ineffective [None]
  - Disturbance in attention [None]
  - Product quality issue [None]
  - Migraine [None]
  - Product substitution issue [None]
  - Irritability [None]
  - Product formulation issue [None]

NARRATIVE: CASE EVENT DATE: 20150822
